FAERS Safety Report 6663322-X (Version None)
Quarter: 2010Q2

REPORT INFORMATION
  Report Type: 
  Country: None (occurrence: None)
  Receive Date: 20100401
  Receipt Date: 20100330
  Transmission Date: 20101027
  Serious: Yes (Other)
  Sender: FDA-Public Use
  Company Number: BR-ROXANE LABORATORIES, INC.-2010-RO-00357RO

PATIENT
  Age: 47 Year
  Sex: Female

DRUGS (8)
  1. PREDNISONE [Suspect]
     Indication: BEHCET'S SYNDROME
     Dates: end: 20070401
  2. PREDNISONE [Suspect]
     Dosage: 30 MG
     Dates: start: 20070401
  3. CYCLOPHOSPHAMIDE [Suspect]
     Indication: BEHCET'S SYNDROME
  4. AZATHIOPRINE SODIUM [Suspect]
     Indication: BEHCET'S SYNDROME
     Dosage: 100 MG
     Dates: start: 20070401
  5. NEUROLEPTICS [Concomitant]
     Indication: PSYCHIATRIC SYMPTOM
  6. BENZODIAZEPINES [Concomitant]
     Indication: PSYCHIATRIC SYMPTOM
  7. LITHIUM CARBONATE [Concomitant]
     Indication: MANIA
     Dosage: 600 MG
  8. RISPERIDONE [Concomitant]
     Indication: PSYCHIATRIC SYMPTOM
     Dosage: 2 MG

REACTIONS (3)
  - IRIDOCYCLITIS [None]
  - MOOD DISORDER DUE TO A GENERAL MEDICAL CONDITION [None]
  - PSYCHIATRIC SYMPTOM [None]
